FAERS Safety Report 8458470 (Version 3)
Quarter: 2012Q4

REPORT INFORMATION
  Report Type: 
  Country: US (occurrence: US)
  Receive Date: 20120314
  Receipt Date: 20121024
  Transmission Date: 20130627
  Serious: Yes (Hospitalization, Other)
  Sender: FDA-Public Use
  Company Number: US-PFIZER INC-2012065343

PATIENT
  Age: 50 Year
  Sex: Female
  Weight: 87.08 kg

DRUGS (7)
  1. LYRICA [Suspect]
     Indication: FIBROMYALGIA
     Dosage: 100 mg, daily
     Dates: start: 2011
  2. LYRICA [Suspect]
     Dosage: 75 mg, 2x/day
     Route: 048
     Dates: start: 2011
  3. LYRICA [Suspect]
     Dosage: 150 mg, 2x/day
     Route: 048
  4. LIBRAX [Suspect]
     Indication: IRRITABLE BOWEL SYNDROME
     Dosage: UNK
     Dates: start: 201208, end: 2012
  5. LISINOPRIL [Concomitant]
     Indication: HYPERTENSION
     Dosage: 40 mg, daily
  6. HYDROCHLOROTHIAZIDE [Concomitant]
     Indication: DIURETIC THERAPY
     Dosage: 25 mg, daily
  7. LEVOTHYROXINE [Concomitant]
     Indication: THYROID DISORDER
     Dosage: 0.65 mg, daily

REACTIONS (7)
  - Bladder disorder [Unknown]
  - Sepsis [Unknown]
  - Crohn^s disease [Not Recovered/Not Resolved]
  - Drug administration error [Unknown]
  - Drug ineffective [Unknown]
  - Hypoaesthesia [Recovered/Resolved]
  - Somnolence [Unknown]
